FAERS Safety Report 17165626 (Version 2)
Quarter: 2020Q1

REPORT INFORMATION
  Report Type: Spontaneous
  Country: US (occurrence: US)
  Receive Date: 20191217
  Receipt Date: 20200102
  Transmission Date: 20200409
  Serious: Yes (Hospitalization)
  Sender: FDA-Public Use
  Company Number: US-ASTRAZENECA-2019SF81972

PATIENT
  Age: 295 Day
  Sex: Male
  Weight: 4.1 kg

DRUGS (7)
  1. CALCIUM [Concomitant]
     Active Substance: CALCIUM
  2. SODIUM PHOSPHATE [Concomitant]
     Active Substance: SODIUM PHOSPHATE
  3. SYNAGIS [Suspect]
     Active Substance: PALIVIZUMAB
     Indication: RESPIRATORY SYNCYTIAL VIRUS INFECTION
     Route: 030
     Dates: start: 201911
  4. SILDENAFIL. [Concomitant]
     Active Substance: SILDENAFIL
  5. AQUADEKS [Concomitant]
     Active Substance: MINERALS\VITAMINS
  6. POTASSIUM [Concomitant]
     Active Substance: POTASSIUM
  7. CHOLECALCIFEROL [Concomitant]
     Active Substance: CHOLECALCIFEROL

REACTIONS (2)
  - Ill-defined disorder [Unknown]
  - Sickle cell trait [Unknown]
